FAERS Safety Report 6430159-6 (Version None)
Quarter: 2009Q4

REPORT INFORMATION
  Report Type: 
  Country: None (occurrence: None)
  Receive Date: 20091104
  Receipt Date: 20091104
  Transmission Date: 20100525
  Serious: Yes (Hospitalization, Other)
  Sender: FDA-Public Use
  Company Number: None

PATIENT
  Age: 44 Year
  Sex: Male
  Weight: 106.5953 kg

DRUGS (10)
  1. CLINDAMYCIN [Suspect]
     Indication: ABSCESS
     Dosage: 150 MG. 1 EVERY 8 HOURS PO
     Route: 048
     Dates: start: 20090907, end: 20090909
  2. CLINDAMYCIN [Suspect]
     Indication: TOOTHACHE
     Dosage: 150 MG. 1 EVERY 8 HOURS PO
     Route: 048
     Dates: start: 20090907, end: 20090909
  3. BUPROPION HCL [Concomitant]
  4. ALPRAZOLAM [Concomitant]
  5. PAROXETENE [Concomitant]
  6. NEURONTIN [Concomitant]
  7. TIZANIDINE HCL [Concomitant]
  8. ADDERALL 10 [Concomitant]
  9. PROPANONOL [Concomitant]
  10. ADVIL [Concomitant]

REACTIONS (7)
  - CONSTIPATION [None]
  - DELIRIUM [None]
  - DIVERTICULITIS [None]
  - FALL [None]
  - LOSS OF CONSCIOUSNESS [None]
  - MALAISE [None]
  - SOMNOLENCE [None]
